FAERS Safety Report 8266213-6 (Version None)
Quarter: 2012Q1

REPORT INFORMATION
  Report Type: 
  Country: None (occurrence: None)
  Receive Date: 20120327
  Receipt Date: 20090925
  Transmission Date: 20120608
  Serious: Yes (Death)
  Sender: FDA-Public Use
  Company Number: PHEH2009US11641

PATIENT
  Age: 51 Year
  Sex: Female

DRUGS (8)
  1. MEPRON [Concomitant]
  2. AUGMENTIN '125' [Concomitant]
  3. ACYCLOVIR [Concomitant]
  4. GLEEVEC [Suspect]
     Indication: CHROMOSOME ANALYSIS ABNORMAL
     Dosage: 400 MG, QD, ORAL
     Route: 048
     Dates: start: 20090706
  5. GLEEVEC [Suspect]
     Indication: ACUTE LYMPHOCYTIC LEUKAEMIA
     Dosage: 400 MG, QD, ORAL
     Route: 048
     Dates: start: 20090706
  6. FLUCONAZOLE [Concomitant]
  7. PRILOSEC [Concomitant]
  8. FENTANYL-100 [Concomitant]

REACTIONS (3)
  - BRONCHOPULMONARY ASPERGILLOSIS [None]
  - RESPIRATORY FAILURE [None]
  - HAEMOPTYSIS [None]
